FAERS Safety Report 18998317 (Version 2)
Quarter: 2021Q1

REPORT INFORMATION
  Report Type: Spontaneous
  Country: US (occurrence: US)
  Receive Date: 20210311
  Receipt Date: 20210313
  Transmission Date: 20210420
  Serious: Yes (Death)
  Sender: FDA-Public Use
  Company Number: US-CELGENEUS-USA-20210302871

PATIENT

DRUGS (6)
  1. ELOTUZUMAB. [Concomitant]
     Active Substance: ELOTUZUMAB
     Dosage: 20 MILLIGRAM/KILOGRAM
     Route: 041
  2. ELOTUZUMAB. [Concomitant]
     Active Substance: ELOTUZUMAB
     Dosage: 10 MILLIGRAM/KILOGRAM
     Route: 041
     Dates: start: 20160128
  3. LENALIDOMIDE [Suspect]
     Active Substance: LENALIDOMIDE
     Indication: PLASMA CELL MYELOMA
     Dosage: 10 MILLIGRAM
     Route: 048
     Dates: start: 20150415
  4. DEXAMETHASONE. [Concomitant]
     Active Substance: DEXAMETHASONE
     Indication: PLASMA CELL MYELOMA
     Route: 065
  5. ELOTUZUMAB. [Concomitant]
     Active Substance: ELOTUZUMAB
     Dosage: 10 MILLIGRAM/KILOGRAM
     Route: 041
     Dates: end: 20160127
  6. ELOTUZUMAB. [Concomitant]
     Active Substance: ELOTUZUMAB
     Indication: PLASMA CELL MYELOMA
     Dosage: 10 MILLIGRAM/KILOGRAM
     Route: 041
     Dates: start: 20150415

REACTIONS (1)
  - Pneumonia [Fatal]
